FAERS Safety Report 8300093-5 (Version None)
Quarter: 2012Q2

REPORT INFORMATION
  Report Type: 
  Country: None (occurrence: None)
  Receive Date: 20120420
  Receipt Date: 20120416
  Transmission Date: 20120825
  Serious: No
  Sender: FDA-Public Use
  Company Number: US-PFIZER INC-2012094961

PATIENT
  Sex: Female
  Weight: 66 kg

DRUGS (4)
  1. DETROL [Suspect]
     Indication: PRODUCT USED FOR UNKNOWN INDICATION
     Dosage: UNK
  2. COLESTYRAMINE [Concomitant]
     Dosage: 5.7 G, UNK
  3. COREG [Concomitant]
     Dosage: 25 MG, UNK
  4. VESICARE [Suspect]
     Indication: PRODUCT USED FOR UNKNOWN INDICATION
     Dosage: UNK
     Route: 048

REACTIONS (1)
  - HALLUCINATION, AUDITORY [None]
